FAERS Safety Report 26055718 (Version 1)
Quarter: 2025Q4

REPORT INFORMATION
  Report Type: Report from Study
  Country: US (occurrence: US)
  Receive Date: 20251117
  Receipt Date: 20251117
  Transmission Date: 20260117
  Serious: Yes (Other)
  Sender: ABBVIE
  Company Number: US-ABBVIE-6548903

PATIENT
  Age: 47 Year
  Sex: Female

DRUGS (1)
  1. RINVOQ [Suspect]
     Active Substance: UPADACITINIB
     Indication: Colitis ulcerative
     Route: 048
     Dates: start: 20240706

REACTIONS (4)
  - Uterine haemorrhage [Unknown]
  - Procedural pain [Unknown]
  - Hormone level abnormal [Unknown]
  - Premature menopause [Unknown]

NARRATIVE: CASE EVENT DATE: 20250101
